FAERS Safety Report 11270679 (Version 2)
Quarter: 2015Q3

REPORT INFORMATION
  Report Type: Spontaneous
  Country: JP (occurrence: JP)
  Receive Date: 20150714
  Receipt Date: 20150724
  Transmission Date: 20151125
  Serious: Yes (Disabling)
  Sender: FDA-Public Use
  Company Number: JP-ASTRAZENECA-2015SE67694

PATIENT
  Age: 46 Year
  Sex: Male
  Weight: 85 kg

DRUGS (16)
  1. SEIBULE [Concomitant]
     Active Substance: MIGLITOL
     Route: 048
     Dates: start: 20120323, end: 20150629
  2. VICTOZA [Concomitant]
     Active Substance: LIRAGLUTIDE
     Dates: start: 20130331, end: 20130406
  3. VICTOZA [Concomitant]
     Active Substance: LIRAGLUTIDE
     Route: 058
     Dates: start: 20130407, end: 20150629
  4. GLIMEPIRIDE. [Concomitant]
     Active Substance: GLIMEPIRIDE
     Dates: start: 20120323, end: 20120824
  5. AMARYL [Concomitant]
     Active Substance: GLIMEPIRIDE
     Dates: start: 20120323, end: 20120824
  6. MICARDIS [Concomitant]
     Active Substance: TELMISARTAN
     Route: 048
     Dates: start: 20070622, end: 20150629
  7. METGLUCO [Concomitant]
     Active Substance: METFORMIN HYDROCHLORIDE
     Route: 048
     Dates: start: 20131122, end: 20150629
  8. BENIDIPINE HYDROCHLORIDE [Concomitant]
     Active Substance: BENIDIPINE HYDROCHLORIDE
     Route: 048
     Dates: start: 20070914, end: 20150629
  9. AMARYL [Concomitant]
     Active Substance: GLIMEPIRIDE
     Route: 065
     Dates: start: 20130118
  10. VICTOZA [Concomitant]
     Active Substance: LIRAGLUTIDE
     Dates: start: 20130324, end: 20130330
  11. EPADEL S [Concomitant]
     Active Substance: ETHYL ICOSAPENTATE\ICOSAPENT
     Route: 048
     Dates: start: 20140509, end: 20150629
  12. FORXIGA [Suspect]
     Active Substance: DAPAGLIFLOZIN
     Indication: TYPE 2 DIABETES MELLITUS
     Route: 048
     Dates: start: 20140725, end: 20150629
  13. GLIMEPIRIDE. [Concomitant]
     Active Substance: GLIMEPIRIDE
     Dosage: MORNINGS, DOSE UNKNOWN
     Route: 048
     Dates: start: 20130118, end: 20150629
  14. FEBURIC [Concomitant]
     Active Substance: FEBUXOSTAT
     Dosage: MORNINGS
     Route: 048
     Dates: start: 20140509, end: 20150629
  15. METGLUCO [Concomitant]
     Active Substance: METFORMIN HYDROCHLORIDE
     Dates: start: 20120323, end: 20130404
  16. METGLUCO [Concomitant]
     Active Substance: METFORMIN HYDROCHLORIDE
     Dosage: 500 MG IN THE MORNING, 250 MG AT NOON AND 500 MG IN THE EVENING
     Dates: start: 20130405, end: 20131121

REACTIONS (1)
  - Cerebral infarction [Recovered/Resolved with Sequelae]

NARRATIVE: CASE EVENT DATE: 20150630
